FAERS Safety Report 7624118-5 (Version None)
Quarter: 2011Q3

REPORT INFORMATION
  Report Type: 
  Country: None (occurrence: None)
  Receive Date: 20110720
  Receipt Date: 20110712
  Transmission Date: 20111222
  Serious: Yes (Hospitalization, Other)
  Sender: FDA-Public Use
  Company Number: DK-ABBOTT-11P-044-0703688-00

PATIENT
  Sex: Female
  Weight: 61 kg

DRUGS (3)
  1. HUMIRA [Suspect]
     Indication: RHEUMATOID ARTHRITIS
     Dates: start: 20090420, end: 20101012
  2. METHOTREXATE [Concomitant]
     Indication: PRODUCT USED FOR UNKNOWN INDICATION
     Route: 048
     Dates: start: 20090319, end: 20101012
  3. HUMIRA [Suspect]
     Dates: start: 20110221

REACTIONS (4)
  - INFECTION [None]
  - POST PROCEDURAL INFECTION [None]
  - ADNEXA UTERI MASS [None]
  - SCAR [None]
